FAERS Safety Report 15966552 (Version 1)
Quarter: 2019Q1

REPORT INFORMATION
  Report Type: Spontaneous
  Country: US (occurrence: US)
  Receive Date: 20190215
  Receipt Date: 20190215
  Transmission Date: 20190418
  Serious: Yes (Other)
  Sender: FDA-Public Use
  Company Number: US-TEVA-2019-US-1010610

PATIENT

DRUGS (1)
  1. QVAR REDIHALER [Suspect]
     Active Substance: BECLOMETHASONE DIPROPIONATE
     Route: 065
     Dates: start: 2019

REACTIONS (6)
  - Cough [Unknown]
  - Device issue [Unknown]
  - Sleep apnoea syndrome [Unknown]
  - Sleep deficit [Unknown]
  - Dyspnoea [Unknown]
  - Asthma [Unknown]
